FAERS Safety Report 4886359-X (Version None)
Quarter: 2006Q1

REPORT INFORMATION
  Report Type: 
  Country: None (occurrence: None)
  Receive Date: 20060120
  Receipt Date: 20050718
  Transmission Date: 20060701
  Serious: Yes (Disabling, Other)
  Sender: FDA-Public Use
  Company Number: US-MERCK-0507USA02803

PATIENT
  Age: 52 Year
  Sex: Female
  Weight: 89 kg

DRUGS (2)
  1. VIOXX [Suspect]
     Indication: SYSTEMIC LUPUS ERYTHEMATOSUS
     Route: 048
     Dates: start: 19990101, end: 20040101
  2. VIOXX [Suspect]
     Indication: DERMATOMYOSITIS
     Route: 048
     Dates: start: 19990101, end: 20040101

REACTIONS (3)
  - JOINT INJURY [None]
  - MYOCARDIAL INFARCTION [None]
  - TRANSIENT ISCHAEMIC ATTACK [None]
